FAERS Safety Report 21820929 (Version 2)
Quarter: 2023Q1

REPORT INFORMATION
  Report Type: Spontaneous
  Country: US (occurrence: US)
  Receive Date: 20230105
  Receipt Date: 20230114
  Transmission Date: 20230418
  Serious: Yes (Hospitalization)
  Sender: FDA-Public Use
  Company Number: US-TEVA-2022-US-2841578

PATIENT
  Age: 67 Year
  Sex: Female
  Weight: 90.26 kg

DRUGS (2)
  1. AJOVY [Suspect]
     Active Substance: FREMANEZUMAB-VFRM
     Indication: Migraine without aura
     Dosage: 225/1.5 MG/ML, LAST DOSE ADMINISTERED: 04JAN2023
     Route: 065
     Dates: start: 2019
  2. AJOVY [Suspect]
     Active Substance: FREMANEZUMAB-VFRM
     Indication: Migraine

REACTIONS (5)
  - Intestinal obstruction [Unknown]
  - Endotracheal intubation [Unknown]
  - Illness [Unknown]
  - Product dose omission issue [Unknown]
  - Weight decreased [Unknown]
